FAERS Safety Report 17439848 (Version 1)
Quarter: 2020Q1

REPORT INFORMATION
  Report Type: Spontaneous
  Country: US (occurrence: US)
  Receive Date: 20200220
  Receipt Date: 20200220
  Transmission Date: 20200409
  Serious: Yes (Other)
  Sender: FDA-Public Use
  Company Number: US-MYLANLABS-2020M1018334

PATIENT
  Age: 5 Decade
  Sex: Female

DRUGS (8)
  1. APREMILAST [Suspect]
     Active Substance: APREMILAST
     Indication: PALMOPLANTAR PUSTULOSIS
     Dosage: UNK
     Route: 065
     Dates: start: 201501, end: 201711
  2. CYCLOSPORINE. [Concomitant]
     Active Substance: CYCLOSPORINE
     Indication: PALMOPLANTAR PUSTULOSIS
     Dosage: 200 MILLIGRAM
     Route: 065
     Dates: start: 200908, end: 201002
  3. CYCLOSPORINE. [Concomitant]
     Active Substance: CYCLOSPORINE
     Dosage: 200 MILLIGRAM
     Route: 065
     Dates: start: 201409, end: 201412
  4. ISOTRETINOIN. [Suspect]
     Active Substance: ISOTRETINOIN
     Indication: PALMOPLANTAR PUSTULOSIS
     Dosage: UNK
     Route: 065
     Dates: start: 200910, end: 201002
  5. ACITRETIN. [Suspect]
     Active Substance: ACITRETIN
     Indication: PALMOPLANTAR PUSTULOSIS
     Dosage: UNK
     Route: 065
     Dates: start: 201409, end: 201412
  6. USTEKINUMAB [Suspect]
     Active Substance: USTEKINUMAB
     Indication: PALMOPLANTAR PUSTULOSIS
     Dosage: 90 MG X 4 INJECTIONS
     Route: 058
     Dates: start: 201306, end: 201311
  7. TOCILIZUMAB. [Suspect]
     Active Substance: TOCILIZUMAB
     Indication: PALMOPLANTAR PUSTULOSIS
     Dosage: UNK
     Route: 065
     Dates: start: 201505, end: 201711
  8. GUSELKUMAB [Suspect]
     Active Substance: GUSELKUMAB
     Indication: PALMOPLANTAR PUSTULOSIS
     Dosage: 100 MG X 1 INJECTION
     Route: 065
     Dates: start: 201712, end: 201712

REACTIONS (1)
  - Drug ineffective [Unknown]
